FAERS Safety Report 5044383-0 (Version None)
Quarter: 2006Q2

REPORT INFORMATION
  Report Type: 
  Country: None (occurrence: None)
  Receive Date: 20060629
  Receipt Date: 20060620
  Transmission Date: 20061013
  Serious: Yes (Hospitalization, Other)
  Sender: FDA-Public Use
  Company Number: 2006038117

PATIENT
  Age: 86 Year
  Sex: Male
  Weight: 72.5 kg

DRUGS (5)
  1. ALPRAZOLAM [Suspect]
     Indication: INSOMNIA
     Dosage: 0.8 MG (0.8 MG, 1 IN 1 D) ORAL
     Route: 048
     Dates: start: 20050526
  2. HALCION [Suspect]
     Indication: INSOMNIA
     Dosage: ORAL
     Route: 048
  3. AMLODIPINE [Concomitant]
  4. BLOPRESS (CANDESARTAN CILEXETIL) [Concomitant]
  5. DOXAZOSIN MESYLATE [Concomitant]

REACTIONS (3)
  - DEPENDENCE [None]
  - GASTRIC ULCER [None]
  - HALLUCINATION [None]
